FAERS Safety Report 18408790 (Version 1)
Quarter: 2020Q4

REPORT INFORMATION
  Report Type: Spontaneous
  Country: US (occurrence: US)
  Receive Date: 20201021
  Receipt Date: 20201021
  Transmission Date: 20210114
  Serious: Yes (Death, Hospitalization, Other)
  Sender: FDA-Public Use
  Company Number: US-AMGEN-USASP2020168618

PATIENT

DRUGS (2)
  1. PLERIXAFOR [Concomitant]
     Active Substance: PLERIXAFOR
     Indication: HAEMATOPOIETIC STEM CELL MOBILISATION
     Dosage: 0.24 MILLIGRAM/KILOGRAM (STARTING DAY 3 OF FILGRASTIM)
     Route: 058
     Dates: start: 200910
  2. FILGRASTIM [Suspect]
     Active Substance: FILGRASTIM
     Indication: HAEMATOPOIETIC STEM CELL MOBILISATION
     Dosage: 10 MICROGRAM/KILOGRAM, QD
     Route: 058

REACTIONS (10)
  - Nausea [Unknown]
  - Weight increased [Unknown]
  - Haemorrhage [Unknown]
  - Hypotension [Unknown]
  - Haemorrhage intracranial [Fatal]
  - Cardiac failure [Unknown]
  - Febrile neutropenia [Unknown]
  - Disease progression [Fatal]
  - Diarrhoea [Unknown]
  - Arrhythmia [Unknown]
